FAERS Safety Report 23472144 (Version 6)
Quarter: 2024Q1

REPORT INFORMATION
  Report Type: Report from Study
  Country: CA (occurrence: CA)
  Receive Date: 20240202
  Receipt Date: 20240327
  Transmission Date: 20240409
  Serious: Yes (Hospitalization, Other)
  Sender: FDA-Public Use
  Company Number: CA-BEH-2024166971

PATIENT
  Age: 70 Year
  Sex: Male
  Weight: 40 kg

DRUGS (9)
  1. HIZENTRA [Suspect]
     Active Substance: HUMAN IMMUNOGLOBULIN G
     Indication: Secondary immunodeficiency
     Dosage: 10 GRAM, QW
     Route: 065
     Dates: start: 20231207
  2. HIZENTRA [Suspect]
     Active Substance: HUMAN IMMUNOGLOBULIN G
     Dosage: UNK
     Route: 065
     Dates: start: 20231221
  3. HIZENTRA [Suspect]
     Active Substance: HUMAN IMMUNOGLOBULIN G
     Dosage: UNK
     Route: 065
     Dates: start: 20240110
  4. HIZENTRA [Suspect]
     Active Substance: HUMAN IMMUNOGLOBULIN G
     Dosage: 10 GRAM, QW
     Route: 065
     Dates: start: 20231207
  5. HIZENTRA [Suspect]
     Active Substance: HUMAN IMMUNOGLOBULIN G
     Dosage: UNK
     Route: 065
     Dates: start: 20240207
  6. HIZENTRA [Suspect]
     Active Substance: HUMAN IMMUNOGLOBULIN G
     Dosage: 10 GRAM, QW
     Route: 065
     Dates: start: 20231207
  7. HIZENTRA [Suspect]
     Active Substance: HUMAN IMMUNOGLOBULIN G
     Dosage: UNK
     Route: 065
     Dates: start: 20240318
  8. INFLUENZA VIRUS VACCINE [Concomitant]
     Active Substance: INFLUENZA VIRUS VACCINE
     Dosage: UNK
     Dates: start: 20240122
  9. FLECAINIDE [Concomitant]
     Active Substance: FLECAINIDE
     Indication: Atrial fibrillation

REACTIONS (29)
  - Stress [Unknown]
  - Fatigue [Unknown]
  - Insomnia [Recovering/Resolving]
  - Feeling of despair [Unknown]
  - COVID-19 [Unknown]
  - Immune system disorder [Unknown]
  - Viral load increased [Unknown]
  - Platelet count decreased [Unknown]
  - Anxiety [Unknown]
  - Disturbance in attention [Unknown]
  - Injection site bruising [Unknown]
  - Increased tendency to bruise [Unknown]
  - No adverse event [Unknown]
  - Product use complaint [Unknown]
  - Pulmonary mass [Unknown]
  - Weight increased [Unknown]
  - Increased appetite [Unknown]
  - Dyskinesia [Not Recovered/Not Resolved]
  - Dyspnoea [Unknown]
  - Ill-defined disorder [Unknown]
  - Weight decreased [Recovered/Resolved]
  - Post-acute COVID-19 syndrome [Unknown]
  - Pneumonitis [Unknown]
  - Somatic symptom disorder [Unknown]
  - SARS-CoV-2 test positive [Unknown]
  - Injection site swelling [Recovered/Resolved]
  - Inflammation [Unknown]
  - Oedema peripheral [Not Recovered/Not Resolved]
  - Swelling [Not Recovered/Not Resolved]

NARRATIVE: CASE EVENT DATE: 20231201
